FAERS Safety Report 19841225 (Version 1)
Quarter: 2021Q3

REPORT INFORMATION
  Report Type: Spontaneous
  Country: DE (occurrence: DE)
  Receive Date: 20210916
  Receipt Date: 20210916
  Transmission Date: 20211014
  Serious: Yes (Other)
  Sender: FDA-Public Use
  Company Number: DE-BAYER-2021-205729

PATIENT
  Age: 43 Year
  Sex: Female
  Weight: 62 kg

DRUGS (2)
  1. QLAIRA FILMTABLETTEN [Suspect]
     Active Substance: DIENOGEST\ESTRADIOL VALERATE
     Indication: CONTRACEPTION
     Dosage: UNK
     Dates: start: 20210810
  2. QLAIRA FILMTABLETTEN [Suspect]
     Active Substance: DIENOGEST\ESTRADIOL VALERATE
     Indication: CONTRACEPTION
     Dosage: 1 DF, QD
     Dates: start: 201801, end: 202107

REACTIONS (7)
  - Abortion spontaneous [None]
  - Amenorrhoea [None]
  - Drug ineffective [None]
  - Inappropriate schedule of product administration [None]
  - Pregnancy on oral contraceptive [None]
  - Haemorrhage in pregnancy [None]
  - Nausea [None]

NARRATIVE: CASE EVENT DATE: 202106
